FAERS Safety Report 6695104-7 (Version None)
Quarter: 2010Q2

REPORT INFORMATION
  Report Type: 
  Country: None (occurrence: None)
  Receive Date: 20100423
  Receipt Date: 20100416
  Transmission Date: 20101027
  Serious: Yes (Death, Disabling)
  Sender: FDA-Public Use
  Company Number: PHEH2010US03245

PATIENT

DRUGS (8)
  1. EXELON [Suspect]
     Indication: DEMENTIA
     Dosage: DAILY
     Dates: start: 20090310
  2. AZOR (ALPRAZOLAM) [Concomitant]
  3. METFORMIN [Concomitant]
  4. ACTOS [Concomitant]
  5. ASPIRIN [Concomitant]
  6. CALCIUM [Concomitant]
  7. MAGNESIUM [Concomitant]
  8. CLARITIN [Concomitant]

REACTIONS (13)
  - ANGIOPATHY [None]
  - APHASIA [None]
  - BALANCE DISORDER [None]
  - CEREBROVASCULAR ACCIDENT [None]
  - CONFUSIONAL STATE [None]
  - DISORIENTATION [None]
  - DYSPHAGIA [None]
  - FALL [None]
  - GAIT DISTURBANCE [None]
  - INCOHERENT [None]
  - LOSS OF CONSCIOUSNESS [None]
  - MOTOR DYSFUNCTION [None]
  - SENSORY LOSS [None]
